FAERS Safety Report 8214940-9 (Version None)
Quarter: 2012Q1

REPORT INFORMATION
  Report Type: 
  Country: None (occurrence: None)
  Receive Date: 20120316
  Receipt Date: 20120313
  Transmission Date: 20120608
  Serious: No
  Sender: FDA-Public Use
  Company Number: US-PFIZER INC-2011071990

PATIENT
  Sex: Female

DRUGS (4)
  1. PHENOXYMETHYL PENICILLIN [Suspect]
  2. TETRACYCLINE HCL [Suspect]
  3. DEMEROL [Suspect]
  4. ESTROGENS CONJUGATED [Suspect]

REACTIONS (3)
  - ARTHRALGIA [None]
  - SWELLING [None]
  - RASH [None]
